FAERS Safety Report 5663952-8 (Version None)
Quarter: 2008Q1

REPORT INFORMATION
  Report Type: 
  Country: None (occurrence: None)
  Receive Date: 20080314
  Receipt Date: 20080307
  Transmission Date: 20080703
  Serious: Yes (Disabling, Other)
  Sender: FDA-Public Use
  Company Number: GB-TEVA-163746ISR

PATIENT
  Age: 34 Year
  Sex: Female
  Weight: 62 kg

DRUGS (3)
  1. PROPRANOLOL [Suspect]
     Indication: ANXIETY
     Route: 048
     Dates: end: 20030101
  2. PROPRANOLOL [Suspect]
     Route: 048
     Dates: start: 20030101, end: 20030101
  3. OLANZAPINE [Suspect]
     Indication: AGITATION
     Route: 048
     Dates: start: 19950101

REACTIONS (3)
  - ALOPECIA [None]
  - TINNITUS [None]
  - WEIGHT INCREASED [None]
